FAERS Safety Report 25212595 (Version 1)
Quarter: 2025Q2

REPORT INFORMATION
  Report Type: Spontaneous
  Country: US (occurrence: US)
  Receive Date: 20250418
  Receipt Date: 20250418
  Transmission Date: 20250717
  Serious: Yes (Life-Threatening, Hospitalization, Other)
  Sender: STRIDES
  Company Number: US-STRIDES ARCOLAB LIMITED-2025SP005007

PATIENT
  Age: 63 Year
  Sex: Female

DRUGS (3)
  1. PREDNISOLONE [Suspect]
     Active Substance: PREDNISOLONE
     Indication: Asthma-chronic obstructive pulmonary disease overlap syndrome
     Route: 065
  2. IVERMECTIN [Concomitant]
     Active Substance: IVERMECTIN
     Indication: Strongyloidiasis
     Route: 065
  3. ALBENDAZOLE [Concomitant]
     Active Substance: ALBENDAZOLE
     Indication: Strongyloidiasis
     Route: 065

REACTIONS (6)
  - Acute respiratory failure [Unknown]
  - Metabolic encephalopathy [Unknown]
  - Strongyloidiasis [Unknown]
  - Septic shock [Unknown]
  - Myopathy [Unknown]
  - Off label use [Unknown]
